FAERS Safety Report 24830489 (Version 1)
Quarter: 2025Q1

REPORT INFORMATION
  Report Type: Spontaneous
  Country: GR (occurrence: GR)
  Receive Date: 20250110
  Receipt Date: 20250110
  Transmission Date: 20250409
  Serious: Yes (Other)
  Sender: JOHNSON AND JOHNSON
  Company Number: GR-JNJFOC-20241282781

PATIENT
  Age: 50 Year
  Sex: Female

DRUGS (4)
  1. TREMFYA [Suspect]
     Active Substance: GUSELKUMAB
     Indication: Psoriasis
     Route: 065
     Dates: start: 2022
  2. HALOPERIDOL [Concomitant]
     Active Substance: HALOPERIDOL
  3. CLONAZEPAM [Concomitant]
     Active Substance: CLONAZEPAM
  4. Kinetone Advance Syrup [Concomitant]

REACTIONS (1)
  - Bipolar disorder [Not Recovered/Not Resolved]

NARRATIVE: CASE EVENT DATE: 20241101
